FAERS Safety Report 14613988 (Version 1)
Quarter: 2018Q1

REPORT INFORMATION
  Report Type: Spontaneous
  Country: US (occurrence: US)
  Receive Date: 20180308
  Receipt Date: 20180308
  Transmission Date: 20180509
  Serious: Yes (Death, Hospitalization)
  Sender: FDA-Public Use
  Company Number: None

PATIENT
  Age: 62 Year

DRUGS (29)
  1. BOSULIF [Suspect]
     Active Substance: BOSUTINIB MONOHYDRATE
     Indication: CHRONIC MYELOID LEUKAEMIA
     Route: 048
     Dates: start: 20180208
  2. ICLUSIC [Concomitant]
  3. ZOFRAN [Concomitant]
     Active Substance: ONDANSETRON HYDROCHLORIDE
  4. VALACYCLOVIR [Concomitant]
     Active Substance: VALACYCLOVIR HYDROCHLORIDE
  5. RESTASIS [Concomitant]
     Active Substance: CYCLOSPORINE
  6. METOPROL TAR [Concomitant]
  7. OXYCODONE [Concomitant]
     Active Substance: OXYCODONE
  8. DESONIDE. [Concomitant]
     Active Substance: DESONIDE
  9. MG-PLUS [Concomitant]
  10. CRESEMBA [Concomitant]
     Active Substance: ISAVUCONAZONIUM SULFATE
  11. LEVOFLOXACIN. [Concomitant]
     Active Substance: LEVOFLOXACIN
  12. ASPIRIN. [Concomitant]
     Active Substance: ASPIRIN
  13. CLARITIN [Concomitant]
     Active Substance: LORATADINE
  14. AZITHROMYCIN ANHYDROUS. [Concomitant]
     Active Substance: AZITHROMYCIN ANHYDROUS
  15. ZOLPIDEM [Concomitant]
     Active Substance: ZOLPIDEM\ZOLPIDEM TARTRATE
  16. PREDNISONE. [Concomitant]
     Active Substance: PREDNISONE
  17. CARAFATE [Concomitant]
     Active Substance: SUCRALFATE
  18. CLINDAMYCIN GEL [Concomitant]
  19. URSODIOL. [Concomitant]
     Active Substance: URSODIOL
  20. KLOR-CON [Concomitant]
     Active Substance: POTASSIUM CHLORIDE
  21. SIMVASTATIN. [Concomitant]
     Active Substance: SIMVASTATIN
  22. ONDANSETRON [Concomitant]
     Active Substance: ONDANSETRON
  23. SPRYCEL [Concomitant]
     Active Substance: DASATINIB
  24. ASPIRIN CHW81MG [Concomitant]
  25. MORPHINE SUL [Concomitant]
     Active Substance: MORPHINE SULFATE
  26. FLUCINONIDE CREAM [Concomitant]
  27. PANTOPRAZOLE [Concomitant]
     Active Substance: PANTOPRAZOLE
  28. TACROLIMUS. [Concomitant]
     Active Substance: TACROLIMUS
  29. LORAZEPAM. [Concomitant]
     Active Substance: LORAZEPAM

REACTIONS (1)
  - Death [None]
